FAERS Safety Report 20017025 (Version 1)
Quarter: 2021Q4

REPORT INFORMATION
  Report Type: Spontaneous
  Country: GB (occurrence: GB)
  Receive Date: 20211030
  Receipt Date: 20211030
  Transmission Date: 20220303
  Serious: Yes (Other)
  Sender: FDA-Public Use
  Company Number: GB-MHRA-EYC 00263664

PATIENT
  Age: 60 Year
  Sex: Female
  Weight: 61.23 kg

DRUGS (3)
  1. BISOPROLOL [Suspect]
     Active Substance: BISOPROLOL
     Indication: Tachycardia
     Dosage: UNK
     Route: 048
     Dates: start: 202106, end: 20210823
  2. LORATADINE [Concomitant]
     Active Substance: LORATADINE
     Indication: Product used for unknown indication
     Dosage: UNK
     Route: 065
  3. ZADITEN [Concomitant]
     Active Substance: KETOTIFEN FUMARATE
     Indication: Product used for unknown indication
     Dosage: UNK
     Route: 065

REACTIONS (5)
  - Trigeminal neuralgia [Not Recovered/Not Resolved]
  - Ear pain [Unknown]
  - Facial pain [Not Recovered/Not Resolved]
  - Speech disorder [Unknown]
  - Toothache [Unknown]

NARRATIVE: CASE EVENT DATE: 20210731
